FAERS Safety Report 13215558 (Version 2)
Quarter: 2017Q1

REPORT INFORMATION
  Report Type: Spontaneous
  Country: DE (occurrence: DE)
  Receive Date: 20170209
  Receipt Date: 20170221
  Transmission Date: 20170428
  Serious: Yes (Other)
  Sender: FDA-Public Use
  Company Number: DE-GILEAD-2017-0256878

PATIENT
  Age: 59 Year
  Sex: Male
  Weight: 72 kg

DRUGS (27)
  1. ACICLOVIR [Concomitant]
     Active Substance: ACYCLOVIR
  2. INTERFERON [Concomitant]
     Active Substance: INTERFERON
     Dosage: UNK
     Dates: end: 20120521
  3. PEGASYS [Suspect]
     Active Substance: PEGINTERFERON ALFA-2A
     Indication: HEPATITIS C
     Dosage: 180 UG, UNK
     Route: 065
     Dates: start: 20111205, end: 20120521
  4. PEGASYS [Suspect]
     Active Substance: PEGINTERFERON ALFA-2A
     Dosage: 180 UG, UNK
     Route: 065
     Dates: start: 20120123
  5. PEGASYS [Suspect]
     Active Substance: PEGINTERFERON ALFA-2A
     Dosage: 180 UG, UNK
     Route: 065
     Dates: start: 20120227
  6. COPEGUS [Suspect]
     Active Substance: RIBAVIRIN
     Dosage: 400 MG, UNK
     Route: 065
     Dates: start: 20120312
  7. COPEGUS [Suspect]
     Active Substance: RIBAVIRIN
     Dosage: 400 MG, UNK
     Route: 065
     Dates: start: 20120402
  8. IBUHEXAL                           /00109201/ [Concomitant]
     Active Substance: IBUPROFEN
  9. PALEXIA [Concomitant]
     Active Substance: TAPENTADOL HYDROCHLORIDE
  10. VITAMIN B12 [Concomitant]
     Active Substance: CYANOCOBALAMIN
  11. ZOLPIDEM [Concomitant]
     Active Substance: ZOLPIDEM\ZOLPIDEM TARTRATE
  12. PEGASYS [Suspect]
     Active Substance: PEGINTERFERON ALFA-2A
     Dosage: 180 UG, UNK
     Route: 065
     Dates: start: 20120507
  13. COPEGUS [Suspect]
     Active Substance: RIBAVIRIN
     Indication: HEPATITIS C
     Dosage: 400 MG, UNK
     Route: 065
     Dates: start: 20111205, end: 20120528
  14. COPEGUS [Suspect]
     Active Substance: RIBAVIRIN
     Dosage: 400 MG, UNK
     Route: 065
     Dates: start: 20111127
  15. COPEGUS [Suspect]
     Active Substance: RIBAVIRIN
     Dosage: 400 MG, UNK
     Route: 065
     Dates: start: 20120507
  16. CYMBALTA [Concomitant]
     Active Substance: DULOXETINE HYDROCHLORIDE
     Dosage: 30 MG, QD
     Route: 065
     Dates: start: 20120416
  17. PEGASYS [Suspect]
     Active Substance: PEGINTERFERON ALFA-2A
     Dosage: 180 UG, UNK
     Route: 065
     Dates: start: 20120102
  18. PEGASYS [Suspect]
     Active Substance: PEGINTERFERON ALFA-2A
     Dosage: 180 UG, UNK
     Route: 065
     Dates: start: 20120416
  19. OMEPRAZOL                          /00661201/ [Concomitant]
     Active Substance: OMEPRAZOLE
  20. CYMBALTA [Concomitant]
     Active Substance: DULOXETINE HYDROCHLORIDE
     Dosage: 30 MG, BID
     Route: 065
  21. TRUVADA [Suspect]
     Active Substance: EMTRICITABINE\TENOFOVIR DISOPROXIL FUMARATE
     Indication: HIV INFECTION
     Dosage: 445 MG, QD
     Route: 065
     Dates: start: 20101229, end: 201407
  22. COPEGUS [Suspect]
     Active Substance: RIBAVIRIN
     Dosage: 400 MG, UNK
     Route: 065
     Dates: start: 20120206
  23. ISENTRESS [Concomitant]
     Active Substance: RALTEGRAVIR POTASSIUM
  24. CITALOPRAM [Concomitant]
     Active Substance: CITALOPRAM HYDROBROMIDE
     Dosage: UNK
     Dates: end: 20120416
  25. PYLERA [Concomitant]
     Active Substance: BISMUTH SUBCITRATE POTASSIUM\METRONIDAZOLE\TETRACYCLINE HYDROCHLORIDE
  26. COPEGUS [Suspect]
     Active Substance: RIBAVIRIN
     Dosage: 400 MG, UNK
     Route: 065
     Dates: start: 20120116
  27. COPEGUS [Suspect]
     Active Substance: RIBAVIRIN
     Dosage: 400 MG, UNK
     Route: 065
     Dates: start: 20120116

REACTIONS (37)
  - Helicobacter infection [Recovered/Resolved]
  - Sleep disorder [Unknown]
  - Constipation [Unknown]
  - CD4 lymphocytes decreased [Unknown]
  - Drug eruption [Unknown]
  - Pain [Unknown]
  - Unevaluable event [Unknown]
  - Fatigue [Unknown]
  - Dysuria [Unknown]
  - Depression [Unknown]
  - Dyspepsia [Unknown]
  - Acute stress disorder [Unknown]
  - Depression [Unknown]
  - Gingival bleeding [Unknown]
  - General physical condition abnormal [Unknown]
  - Fatigue [Unknown]
  - Gastric disorder [Recovering/Resolving]
  - Mood altered [Unknown]
  - Dry throat [Unknown]
  - Sleep disorder [Unknown]
  - Epigastric discomfort [Recovering/Resolving]
  - Sleep disorder [Unknown]
  - Mood swings [Unknown]
  - Listless [Unknown]
  - Pruritus generalised [Unknown]
  - Weight increased [Unknown]
  - Flatulence [Recovering/Resolving]
  - Gastritis [Unknown]
  - Herpes zoster [Unknown]
  - Depression [Unknown]
  - Dermatitis [Unknown]
  - Stress [Unknown]
  - Influenza like illness [Unknown]
  - Unevaluable event [Unknown]
  - Epistaxis [Unknown]
  - Viral load increased [Unknown]
  - Herpes zoster [Unknown]

NARRATIVE: CASE EVENT DATE: 20101229
